FAERS Safety Report 10151274 (Version 2)
Quarter: 2014Q2

REPORT INFORMATION
  Report Type: Spontaneous
  Country: US (occurrence: US)
  Receive Date: 20140504
  Receipt Date: 20140504
  Transmission Date: 20141212
  Serious: Yes (Hospitalization)
  Sender: FDA-Public Use
  Company Number: 2014SP001925

PATIENT
  Age: 3 Year
  Sex: Male
  Weight: 15 kg

DRUGS (8)
  1. TOPOTECAN [Suspect]
     Indication: NEUROBLASTOMA
     Route: 042
     Dates: start: 20140318, end: 20140322
  2. CRIZOTINIB [Suspect]
     Indication: NEUROBLASTOMA
     Route: 048
     Dates: start: 20131017
  3. CRIZOTINIB [Suspect]
     Indication: NEUROBLASTOMA
     Route: 048
     Dates: start: 20140326
  4. CRIZOTINIB [Suspect]
     Indication: NEUROBLASTOMA
     Route: 048
     Dates: start: 20140213
  5. CYCLOPHOSPHAMIDE [Suspect]
     Indication: NEUROBLASTOMA
     Route: 042
     Dates: start: 20140318, end: 20140322
  6. NEULASTA [Suspect]
     Dates: start: 20140322, end: 20140322
  7. BACTRIM [Concomitant]
     Indication: PROPHYLAXIS
     Dates: start: 20130115
  8. MULTIVITAMIN /07703801/ [Concomitant]
     Indication: VITAMIN SUPPLEMENTATION
     Dates: start: 20130115

REACTIONS (9)
  - Febrile neutropenia [Recovered/Resolved]
  - Thrombocytopenia [Recovering/Resolving]
  - White blood cell count decreased [Recovering/Resolving]
  - Anaemia [Recovering/Resolving]
  - Fatigue [Recovering/Resolving]
  - Weight decreased [Recovering/Resolving]
  - Transaminases increased [Recovering/Resolving]
  - Blood lactate dehydrogenase increased [Recovering/Resolving]
  - Hypocalcaemia [Recovering/Resolving]
